FAERS Safety Report 6698529-9 (Version None)
Quarter: 2010Q2

REPORT INFORMATION
  Report Type: 
  Country: None (occurrence: None)
  Receive Date: 20100426
  Receipt Date: 20100426
  Transmission Date: 20101027
  Serious: Yes (Hospitalization)
  Sender: FDA-Public Use
  Company Number: None

PATIENT
  Age: 54 Year
  Sex: Female
  Weight: 81.6475 kg

DRUGS (1)
  1. SAVELLA [Suspect]
     Indication: MYALGIA
     Dosage: 1 TWICE/DAY PO
     Route: 048
     Dates: start: 20100329, end: 20100404

REACTIONS (5)
  - AGGRESSION [None]
  - BLOOD PRESSURE INCREASED [None]
  - HYPERHIDROSIS [None]
  - PANIC ATTACK [None]
  - RESTLESSNESS [None]
